FAERS Safety Report 6605094-0 (Version None)
Quarter: 2010Q1

REPORT INFORMATION
  Report Type: 
  Country: None (occurrence: None)
  Receive Date: 20100226
  Receipt Date: 20100224
  Transmission Date: 20100710
  Serious: Yes (Hospitalization)
  Sender: FDA-Public Use
  Company Number: GXKR2010DE02180

PATIENT
  Sex: Female
  Weight: 87 kg

DRUGS (7)
  1. SIMVAHEXAL (NGX) [Suspect]
     Indication: HYPERCHOLESTEROLAEMIA
     Dosage: 20 MG, QD
     Route: 048
     Dates: start: 20090421
  2. METOPROLOL SUCCINATE (NGX) [Suspect]
     Indication: ATRIAL FIBRILLATION
     Dosage: 95 MG, QD
     Route: 048
     Dates: start: 20090303
  3. RAMIPRIL [Suspect]
     Indication: HYPERTENSION
     Dosage: 10 MG, QD
     Route: 048
     Dates: start: 20081202
  4. FALITHROM (NGX) [Suspect]
     Route: 048
  5. DIGITOXIN INJ [Suspect]
     Indication: ATRIAL FIBRILLATION
     Dosage: 0.07 MG, QD
     Route: 048
     Dates: start: 20040101
  6. EXFORGE [Suspect]
     Indication: HYPERTENSION
     Dosage: 1 DF, QD
     Route: 048
     Dates: start: 20081014
  7. TOREM [Suspect]
     Indication: HYPERTENSION
     Dosage: 10 MG, BID
     Route: 048
     Dates: start: 20080129

REACTIONS (3)
  - CARDIAC FAILURE [None]
  - DYSPNOEA [None]
  - OEDEMA PERIPHERAL [None]
